FAERS Safety Report 21159297 (Version 2)
Quarter: 2022Q3

REPORT INFORMATION
  Report Type: Spontaneous
  Country: CN (occurrence: CN)
  Receive Date: 20220802
  Receipt Date: 20220811
  Transmission Date: 20221027
  Serious: Yes (Hospitalization, Other)
  Sender: FDA-Public Use
  Company Number: CN-BRISTOL-MYERS SQUIBB COMPANY-2022-080803

PATIENT
  Age: 70 Year
  Sex: Female
  Weight: 44 kg

DRUGS (2)
  1. OPDIVO [Suspect]
     Active Substance: NIVOLUMAB
     Indication: Gingival cancer
     Dosage: DOSE : 200MG;     FREQ : QD
     Route: 041
     Dates: start: 20220630, end: 20220630
  2. SODIUM CHLORIDE [Concomitant]
     Active Substance: SODIUM CHLORIDE
     Indication: Gingival cancer
     Dates: start: 20220630, end: 20220630

REACTIONS (5)
  - Pneumonia [Recovering/Resolving]
  - Arteriosclerosis coronary artery [Unknown]
  - Hepatic calcification [Unknown]
  - Arteriosclerosis [Unknown]
  - Off label use [Unknown]

NARRATIVE: CASE EVENT DATE: 20220707
